FAERS Safety Report 7039972-8 (Version None)
Quarter: 2010Q4

REPORT INFORMATION
  Report Type: 
  Country: None (occurrence: None)
  Receive Date: 20101012
  Receipt Date: 20101004
  Transmission Date: 20110411
  Serious: Yes (Hospitalization)
  Sender: FDA-Public Use
  Company Number: DE-ROCHE-732176

PATIENT
  Sex: Male

DRUGS (1)
  1. ROCEPHIN [Suspect]
     Indication: NEUROBORRELIOSIS
     Route: 042
     Dates: start: 20080726, end: 20080801

REACTIONS (3)
  - ARTHROPOD BITE [None]
  - MUSCLE SPASMS [None]
  - NEUROBORRELIOSIS [None]
